FAERS Safety Report 7390039-9 (Version None)
Quarter: 2011Q2

REPORT INFORMATION
  Report Type: 
  Country: None (occurrence: None)
  Receive Date: 20110401
  Receipt Date: 20110322
  Transmission Date: 20111010
  Serious: Yes (Hospitalization)
  Sender: FDA-Public Use
  Company Number: HU-JNJFOC-20110311631

PATIENT
  Sex: Female
  Weight: 80 kg

DRUGS (12)
  1. FURON [Concomitant]
     Route: 048
  2. METHYLPREDNISOLONE [Concomitant]
     Route: 048
  3. METHOTREXATE [Suspect]
     Indication: RHEUMATOID ARTHRITIS
     Route: 048
  4. VITAMIN D [Concomitant]
     Route: 048
  5. GOLIMUMAB [Suspect]
     Indication: RHEUMATOID ARTHRITIS
     Route: 058
  6. METHOTREXATE [Concomitant]
     Route: 048
  7. GOLIMUMAB [Suspect]
     Route: 058
  8. PERINDOPRIL [Concomitant]
     Route: 048
  9. IBANDRONATE SODIUM [Concomitant]
     Route: 042
  10. CONCOR [Concomitant]
     Route: 048
  11. KALIUM-R [Concomitant]
     Route: 048
  12. DIAPREL [Concomitant]
     Route: 048

REACTIONS (3)
  - COLITIS [None]
  - COLONIC POLYP [None]
  - HAEMATOCHEZIA [None]
